FAERS Safety Report 6579667-8 (Version None)
Quarter: 2010Q1

REPORT INFORMATION
  Report Type: 
  Country: None (occurrence: None)
  Receive Date: 20100212
  Receipt Date: 20100202
  Transmission Date: 20100710
  Serious: Yes (Hospitalization)
  Sender: FDA-Public Use
  Company Number: JP-ROCHE-672098

PATIENT
  Sex: Male

DRUGS (7)
  1. TAMIFLU [Suspect]
     Route: 048
     Dates: start: 20091109, end: 20091109
  2. TAMIFLU [Suspect]
     Route: 048
     Dates: start: 20091110, end: 20091113
  3. TAMIFLU [Suspect]
     Route: 048
     Dates: start: 20091114, end: 20091114
  4. BACAMPICILLIN HCL [Concomitant]
     Dosage: DRUG: PENGOOD, FORM: ORAL FORMULATION
     Route: 048
     Dates: start: 20091109, end: 20091114
  5. COCARL [Concomitant]
     Dosage: FORM: ORAL FORMULATION
     Route: 048
     Dates: start: 20091109, end: 20091114
  6. SODIUM AZULENE SULFONATE [Concomitant]
     Dosage: DRUG: MESADORIN-S
     Route: 048
     Dates: start: 20091109, end: 20091114
  7. TAKAPLEX [Concomitant]
     Dosage: FORM: ORAL FORMULATION
     Route: 048
     Dates: start: 20091109, end: 20091114

REACTIONS (1)
  - OESOPHAGEAL ULCER [None]
